FAERS Safety Report 13122394 (Version 1)
Quarter: 2017Q1

REPORT INFORMATION
  Report Type: Spontaneous
  Country: US (occurrence: US)
  Receive Date: 20170117
  Receipt Date: 20170117
  Transmission Date: 20170428
  Serious: Yes (Other)
  Sender: FDA-Public Use
  Company Number: US-ASTRAZENECA-2017SE03485

PATIENT
  Sex: Female

DRUGS (8)
  1. CLONIDINE. [Concomitant]
     Active Substance: CLONIDINE
     Indication: BLOOD PRESSURE ABNORMAL
     Dosage: EITHER PILL OR PATCH .2 MG.
  2. BABY ASPIRIN [Concomitant]
     Active Substance: ASPIRIN
     Dates: start: 20160331
  3. CRESTOR [Suspect]
     Active Substance: ROSUVASTATIN CALCIUM
     Route: 048
     Dates: start: 2015
  4. LEVOTHYROXINE. [Concomitant]
     Active Substance: LEVOTHYROXINE
     Indication: HYPOTHYROIDISM
     Dates: start: 2002
  5. PLAVIX [Concomitant]
     Active Substance: CLOPIDOGREL BISULFATE
  6. BRILINTA [Suspect]
     Active Substance: TICAGRELOR
     Route: 048
     Dates: start: 20160331
  7. ZOCOR [Concomitant]
     Active Substance: SIMVASTATIN
  8. LIPITOR [Concomitant]
     Active Substance: ATORVASTATIN CALCIUM

REACTIONS (23)
  - Haemorrhage [Unknown]
  - Atrial fibrillation [Unknown]
  - Arthropathy [Unknown]
  - Chromaturia [Unknown]
  - Myopathy [Unknown]
  - Neuropathy peripheral [Unknown]
  - Gastric disorder [Unknown]
  - Muscle spasms [Unknown]
  - Dental caries [Unknown]
  - Medical device site swelling [Unknown]
  - Vascular pseudoaneurysm [Unknown]
  - Yellow skin [Unknown]
  - Haematoma [Unknown]
  - Pain [Unknown]
  - Breast calcifications [Unknown]
  - Blood urea increased [Unknown]
  - Granuloma [Unknown]
  - Product quality issue [Unknown]
  - Invasive ductal breast carcinoma [Unknown]
  - Heart rate increased [Unknown]
  - Constipation [Unknown]
  - Diarrhoea [Unknown]
  - Renal failure [Unknown]

NARRATIVE: CASE EVENT DATE: 201604
